FAERS Safety Report 8873844 (Version 1)
Quarter: 2012Q4

REPORT INFORMATION
  Report Type: 
  Country: FR (occurrence: FR)
  Receive Date: 20121030
  Receipt Date: 20121030
  Transmission Date: 20130627
  Serious: Yes (Life-Threatening, Hospitalization)
  Sender: FDA-Public Use
  Company Number: FR-BRISTOL-MYERS SQUIBB COMPANY-17048141

PATIENT
  Age: 46 Year
  Sex: Female

DRUGS (10)
  1. ABILIFY TABS [Suspect]
     Route: 048
     Dates: start: 20120903
  2. THERALENE [Suspect]
     Dates: start: 20120903
  3. CLAFORAN [Suspect]
     Dates: start: 20120906, end: 20120916
  4. OFLOCET [Suspect]
     Dates: start: 20120906, end: 20120916
  5. FLAGYL [Suspect]
     Dates: start: 20120906, end: 20120916
  6. INEXIUM [Concomitant]
     Dosage: 1df=20 units not specified
  7. TERCIAN [Concomitant]
     Dosage: in the morning, at midday and in the evening
  8. SPASFON [Concomitant]
     Dosage: in the morning, at midday and in the evening
2x3/d
  9. SEROPLEX [Concomitant]
     Dosage: 1df=10 units not specified
  10. VALIUM [Concomitant]
     Dosage: in the morning, at midday and in the evening

REACTIONS (5)
  - Intentional overdose [Recovering/Resolving]
  - Pleural effusion [Recovering/Resolving]
  - Cholestasis [Recovering/Resolving]
  - Respiratory failure [Recovering/Resolving]
  - Coma [Recovering/Resolving]
